FAERS Safety Report 9400471 (Version 1)
Quarter: 2013Q3

REPORT INFORMATION
  Report Type: Spontaneous
  Country: JP (occurrence: JP)
  Receive Date: 20130715
  Receipt Date: 20130715
  Transmission Date: 20140515
  Serious: Yes (Other)
  Sender: FDA-Public Use
  Company Number: JP-009507513-1307JPN003138

PATIENT
  Age: 49 Year
  Sex: Male
  Weight: 59 kg

DRUGS (10)
  1. BRIDION INTRAVENOUS 200MG [Suspect]
     Indication: NEUROMUSCULAR BLOCKADE REVERSAL
     Dosage: 200 MG, QD
     Route: 042
     Dates: start: 20130629, end: 20130629
  2. ESLAX [Concomitant]
     Dosage: DOSAGE IS UNCERTAIN DURING A DAY
     Route: 042
  3. CEFAZOLIN SODIUM [Concomitant]
     Dosage: DOSAGE IS UNCERTAIN DURING A DAY
     Route: 041
  4. LACTEC [Concomitant]
     Dosage: DOSAGE IS UNCERTAIN DURING A DAY
     Route: 041
  5. VOLTAREN [Concomitant]
     Dosage: DOSAGE IS UNCERTAIN DURING A DAY
     Route: 054
  6. PROPOFOL [Concomitant]
     Dosage: DOSAGE IS UNCERTAIN DURING A DAY
     Route: 042
  7. ULTIVA [Concomitant]
     Dosage: DOSAGE IS UNCERTAIN DURING A DAY
     Route: 042
  8. POPSCAINE [Concomitant]
     Dosage: DOSAGE IS UNCERTAIN DURING A DAY
     Route: 051
  9. XYLOCAINE INJECTION POLYAMP [Concomitant]
     Dosage: DOSAGE IS UNCERTAIN DURING A DAY
     Route: 051
  10. J IODE [Concomitant]
     Dosage: DAILY DOSE UNKNOWN
     Route: 061

REACTIONS (3)
  - Erythema [Recovered/Resolved]
  - Urticaria [Recovered/Resolved]
  - Tachycardia [Unknown]
